FAERS Safety Report 5188829-6 (Version None)
Quarter: 2006Q4

REPORT INFORMATION
  Report Type: 
  Country: None (occurrence: None)
  Receive Date: 20061215
  Receipt Date: 20061130
  Transmission Date: 20070319
  Serious: Yes (Death)
  Sender: FDA-Public Use
  Company Number: MEDI-0004970

PATIENT
  Age: 4 Month
  Sex: Male
  Weight: 6.1 kg

DRUGS (3)
  1. SYNAGIS [Suspect]
     Dosage: INTRAMUSCULAR
     Route: 030
     Dates: start: 20041102, end: 20041206
  2. SYNAGIS [Suspect]
     Dosage: INTRAMUSCULAR
     Route: 030
     Dates: start: 20041102
  3. SYNAGIS [Suspect]
     Dosage: INTRAMUSCULAR
     Route: 030
     Dates: start: 20041102

REACTIONS (7)
  - ATELECTASIS [None]
  - BODY TEMPERATURE DECREASED [None]
  - CARDIO-RESPIRATORY ARREST [None]
  - CHEST X-RAY ABNORMAL [None]
  - PETECHIAE [None]
  - PULMONARY CONGESTION [None]
  - SUDDEN INFANT DEATH SYNDROME [None]
